FAERS Safety Report 4991385-6 (Version None)
Quarter: 2006Q2

REPORT INFORMATION
  Report Type: 
  Country: None (occurrence: None)
  Receive Date: 20060428
  Receipt Date: 20060413
  Transmission Date: 20061013
  Serious: Yes (Other)
  Sender: FDA-Public Use
  Company Number: US_0509121920

PATIENT
  Sex: Male
  Weight: 208.6 kg

DRUGS (1)
  1. ZYPREXA [Suspect]
     Dosage: 10 MG, DAILY (1/D), ORAL
     Route: 048
     Dates: start: 19980101, end: 20050101

REACTIONS (4)
  - DIABETES MELLITUS NON-INSULIN-DEPENDENT [None]
  - HYPERTENSION [None]
  - OBESITY [None]
  - PANCREATITIS [None]
